FAERS Safety Report 5955569-2 (Version None)
Quarter: 2008Q4

REPORT INFORMATION
  Report Type: 
  Country: None (occurrence: None)
  Receive Date: 20081117
  Receipt Date: 20081106
  Transmission Date: 20090506
  Serious: Yes (Other)
  Sender: FDA-Public Use
  Company Number: GB-PFIZER INC-2008076640

PATIENT
  Age: 27 Year
  Sex: Male

DRUGS (4)
  1. LATANOPROST [Suspect]
     Indication: INTRAOCULAR PRESSURE INCREASED
     Route: 047
  2. PILOCARPINE HYDROCHLORIDE [Suspect]
     Indication: INTRAOCULAR PRESSURE INCREASED
     Route: 047
  3. DORZOLAMIDE [Suspect]
     Indication: INTRAOCULAR PRESSURE INCREASED
     Route: 047
  4. TIMOLOL MALEATE [Suspect]
     Indication: INTRAOCULAR PRESSURE INCREASED
     Route: 047

REACTIONS (10)
  - ADVERSE EVENT [None]
  - DRUG INEFFECTIVE [None]
  - FLAT ANTERIOR CHAMBER OF EYE [None]
  - HYPHAEMA [None]
  - INTRAOCULAR LENS IMPLANT [None]
  - INTRAOCULAR PRESSURE INCREASED [None]
  - IRIDOCYCLITIS [None]
  - PHACOTRABECULECTOMY [None]
  - PHOTOCOAGULATION [None]
  - VISUAL ACUITY REDUCED [None]
